FAERS Safety Report 4719137-2 (Version None)
Quarter: 2005Q3

REPORT INFORMATION
  Report Type: 
  Country: None (occurrence: None)
  Receive Date: 20050720
  Receipt Date: 20050504
  Transmission Date: 20060218
  Serious: Yes (Disabling)
  Sender: FDA-Public Use
  Company Number: US-MERCK-0505USA00545

PATIENT
  Age: 81 Year
  Sex: Female
  Weight: 77 kg

DRUGS (3)
  1. VIOXX [Suspect]
     Indication: ARTHRITIS
     Route: 048
     Dates: start: 19990608
  2. HYDRODIURIL [Concomitant]
     Indication: HYPERTENSION
     Route: 065
  3. POTASSIUM (UNSPECIFIED) [Concomitant]
     Route: 065

REACTIONS (10)
  - ALOPECIA [None]
  - BONE DISORDER [None]
  - FALL [None]
  - HYPERGAMMAGLOBULINAEMIA [None]
  - MYALGIA [None]
  - OSTEOARTHRITIS [None]
  - RIB FRACTURE [None]
  - ROAD TRAFFIC ACCIDENT [None]
  - SCIATICA [None]
  - STOMACH DISCOMFORT [None]
